FAERS Safety Report 7968866-6 (Version None)
Quarter: 2011Q4

REPORT INFORMATION
  Report Type: 
  Country: None (occurrence: None)
  Receive Date: 20111209
  Receipt Date: 20111203
  Transmission Date: 20120403
  Serious: Yes (Other)
  Sender: FDA-Public Use
  Company Number: US-ABBOTT-11P-163-0880675-00

PATIENT
  Sex: Male

DRUGS (3)
  1. HUMIRA [Suspect]
     Indication: PSORIASIS
     Route: 058
     Dates: start: 20111014
  2. XANAX [Concomitant]
     Indication: INSOMNIA
     Dosage: AT NIGHT
  3. CLONOPIN [Concomitant]
     Indication: ANXIETY
     Dates: start: 20111014

REACTIONS (2)
  - ROTATOR CUFF SYNDROME [None]
  - HIV TEST POSITIVE [None]
